FAERS Safety Report 7581374-X (Version None)
Quarter: 2011Q2

REPORT INFORMATION
  Report Type: 
  Country: None (occurrence: None)
  Receive Date: 20110629
  Receipt Date: 20110627
  Transmission Date: 20111010
  Serious: Yes (Life-Threatening, Hospitalization)
  Sender: FDA-Public Use
  Company Number: BR-PFIZER INC-2011110386

PATIENT
  Age: 33 Year
  Sex: Male
  Weight: 75 kg

DRUGS (5)
  1. HEMAX [Concomitant]
     Indication: HAEMATOCRIT DECREASED
     Dosage: UNK
  2. LONITEN [Suspect]
     Indication: BLOOD PRESSURE INCREASED
     Dosage: 10 MG (ONE TABLET), DAILY
     Route: 048
     Dates: start: 19960101, end: 20110201
  3. PROPRANOLOL [Concomitant]
     Indication: BLOOD PRESSURE ABNORMAL
  4. LONITEN [Suspect]
     Indication: BLOOD PRESSURE ABNORMAL
  5. PROPRANOLOL [Concomitant]
     Indication: BLOOD PRESSURE INCREASED
     Dosage: 40 MG, 1X/DAY
     Dates: start: 19960101

REACTIONS (2)
  - PNEUMONIA [None]
  - WEIGHT DECREASED [None]
